FAERS Safety Report 21854030 (Version 2)
Quarter: 2023Q1

REPORT INFORMATION
  Report Type: Spontaneous
  Country: US (occurrence: US)
  Receive Date: 20230112
  Receipt Date: 20230210
  Transmission Date: 20230417
  Serious: No
  Sender: FDA-Public Use
  Company Number: US-PFIZER INC-PV202200118470

PATIENT
  Age: 37 Year
  Sex: Female

DRUGS (3)
  1. XELJANZ [Suspect]
     Active Substance: TOFACITINIB CITRATE
     Dosage: 2 TABLETS IN THE MORNING AND 2 TABLETS IN THE EVENING
  2. XELJANZ [Suspect]
     Active Substance: TOFACITINIB CITRATE
     Dosage: 1 TABLET IN THE MORNING AND 1 TABLET IN THE EVENING
  3. PREDNISONE [Concomitant]
     Active Substance: PREDNISONE

REACTIONS (9)
  - Cushingoid [Unknown]
  - Drug hypersensitivity [Unknown]
  - Swelling face [Unknown]
  - Lip swelling [Unknown]
  - Erythema [Unknown]
  - Dry skin [Unknown]
  - Pruritus [Unknown]
  - Off label use [Unknown]
  - Product dose omission issue [Unknown]
